FAERS Safety Report 24669651 (Version 1)
Quarter: 2024Q4

REPORT INFORMATION
  Report Type: Report from Study
  Country: TW (occurrence: TW)
  Receive Date: 20241127
  Receipt Date: 20241127
  Transmission Date: 20250115
  Serious: Yes (Hospitalization, Other)
  Sender: Haleon PLC
  Company Number: TW-HALEON-2210377

PATIENT
  Age: 69 Year
  Sex: Female

DRUGS (3)
  1. IBUPROFEN [Suspect]
     Active Substance: IBUPROFEN
     Indication: Product used for unknown indication
  2. CIMETIDINE [Suspect]
     Active Substance: CIMETIDINE
     Indication: Product used for unknown indication
  3. CEPHALEXIN [Suspect]
     Active Substance: CEPHALEXIN
     Indication: Product used for unknown indication

REACTIONS (10)
  - Stevens-Johnson syndrome [Unknown]
  - Rash maculo-papular [Unknown]
  - Blister [Unknown]
  - Leukocytosis [Unknown]
  - Neutrophilia [Unknown]
  - Eosinophilia [Unknown]
  - Pyrexia [Unknown]
  - Mucosal inflammation [Unknown]
  - Face oedema [Unknown]
  - Severe cutaneous adverse reaction [Unknown]
